FAERS Safety Report 4535433-6 (Version None)
Quarter: 2004Q4

REPORT INFORMATION
  Report Type: 
  Country: None (occurrence: None)
  Receive Date: 20041222
  Receipt Date: 20041130
  Transmission Date: 20050328
  Serious: Yes (Life-Threatening)
  Sender: FDA-Public Use
  Company Number: JP-MERCK-0412USA00386

PATIENT
  Age: 6 Year
  Sex: Female
  Weight: 26 kg

DRUGS (8)
  1. DECADRON [Suspect]
     Indication: CHEMOTHERAPY
     Route: 048
     Dates: start: 20041013, end: 20041029
  2. ADRIACIN [Concomitant]
     Indication: CHEMOTHERAPY
     Route: 042
     Dates: start: 20041027
  3. ONCOVIN [Concomitant]
     Indication: CHEMOTHERAPY
     Route: 051
     Dates: start: 20041027
  4. LEUNASE [Concomitant]
     Indication: CHEMOTHERAPY
     Route: 051
     Dates: start: 20041027
  5. COTRIM [Concomitant]
     Route: 048
     Dates: start: 20040830
  6. DIFLUCAN [Concomitant]
     Route: 048
     Dates: start: 20040830
  7. POLYMYXIN B SULFATE [Concomitant]
     Route: 048
     Dates: start: 20040830
  8. SELBEX [Concomitant]
     Route: 048
     Dates: start: 20041013, end: 20041029

REACTIONS (3)
  - HEADACHE [None]
  - HYPERTENSION [None]
  - HYPERTENSIVE ENCEPHALOPATHY [None]
